FAERS Safety Report 6342087-5 (Version None)
Quarter: 2009Q3

REPORT INFORMATION
  Report Type: 
  Country: None (occurrence: None)
  Receive Date: 20090903
  Receipt Date: 20090903
  Transmission Date: 20100115
  Serious: Yes (Other)
  Sender: FDA-Public Use
  Company Number: None

PATIENT
  Sex: Female
  Weight: 80 kg

DRUGS (1)
  1. TOPIRAMATE [Suspect]
     Indication: EPILEPSY
     Dosage: 100 MG TABS 1 BID P.O.
     Route: 048
     Dates: start: 20090601

REACTIONS (2)
  - HYPOAESTHESIA [None]
  - PRODUCT SUBSTITUTION ISSUE [None]
